FAERS Safety Report 19954331 (Version 2)
Quarter: 2021Q4

REPORT INFORMATION
  Report Type: Report from Study
  Country: US (occurrence: US)
  Receive Date: 20211014
  Receipt Date: 20211025
  Transmission Date: 20220303
  Serious: Yes (Hospitalization, Other)
  Sender: FDA-Public Use
  Company Number: US-HBP-2021US022891

PATIENT
  Sex: Male

DRUGS (7)
  1. VALCHLOR [Suspect]
     Active Substance: MECHLORETHAMINE
     Indication: Cutaneous T-cell lymphoma
     Dosage: UNK, QD
     Route: 061
     Dates: start: 2021
  2. CETIRIZINE HYDROCHLORIDE [Concomitant]
     Active Substance: CETIRIZINE HYDROCHLORIDE
     Dosage: UNK, UNKNOWN
  3. PROSCAR [Concomitant]
     Active Substance: FINASTERIDE
     Dosage: UNK, UNKNOWN
  4. ATENOLOL [Concomitant]
     Active Substance: ATENOLOL
     Dosage: UNK, UNKNOWN
  5. ASPIRIN [Concomitant]
     Active Substance: ASPIRIN
     Dosage: UNK, UNKNOWN
  6. ZESTORETIC [Concomitant]
     Active Substance: HYDROCHLOROTHIAZIDE\LISINOPRIL
     Dosage: UNK, UNKNOWN
  7. VITAMIN D2 [Concomitant]
     Active Substance: ERGOCALCIFEROL
     Dosage: UNK, UNKNOWN

REACTIONS (6)
  - Atrial fibrillation [Unknown]
  - Haemorrhage [Unknown]
  - Condition aggravated [Recovered/Resolved]
  - Intentional dose omission [Recovered/Resolved]
  - Pruritus [Recovered/Resolved]
  - Blister [Unknown]

NARRATIVE: CASE EVENT DATE: 20210101
